FAERS Safety Report 17356446 (Version 4)
Quarter: 2020Q3

REPORT INFORMATION
  Report Type: Report from Study
  Country: None (occurrence: CH)
  Receive Date: 20200131
  Receipt Date: 20200715
  Transmission Date: 20201102
  Serious: Yes (Hospitalization, Other)
  Sender: FDA-Public Use
  Company Number: CH-ABBVIE-20P-151-3238559-00

PATIENT
  Age: 75 Year
  Sex: Male
  Weight: 82 kg

DRUGS (12)
  1. UPADACITINIB [Suspect]
     Active Substance: UPADACITINIB
     Indication: GIANT CELL ARTERITIS
     Route: 048
     Dates: start: 20190528, end: 20200116
  2. PREDNISOLONE. [Suspect]
     Active Substance: PREDNISOLONE
     Indication: GIANT CELL ARTERITIS
     Dosage: PER CS OPEN?LABEL TAPER SCHEDULE
     Route: 048
     Dates: start: 20190529, end: 20190617
  3. PREDNISOLONE. [Suspect]
     Active Substance: PREDNISOLONE
     Dosage: ESCAPE THERAPY (UNIT DOSE REPRESENTS THE DOSE AT THE TIME OF EVENT)
     Route: 048
     Dates: start: 20191015, end: 20200204
  4. UROREC [Concomitant]
     Active Substance: SILODOSIN
     Indication: PROSTATIC DISORDER
     Route: 048
     Dates: start: 20191001
  5. ASPIRIN CARDIO [Concomitant]
     Active Substance: ASPIRIN
     Indication: GIANT CELL ARTERITIS
     Route: 048
     Dates: start: 20190418
  6. TAMSULOSIN [Concomitant]
     Active Substance: TAMSULOSIN
     Indication: PROSTATIC DISORDER
     Route: 048
     Dates: start: 20190925
  7. PERINDOPRIL AMLODIPIN MEPHA [Concomitant]
     Indication: HYPERTENSION
     Dosage: 5MG/10 MG
     Route: 048
     Dates: start: 201802
  8. SPIRIVA [Concomitant]
     Active Substance: TIOTROPIUM BROMIDE MONOHYDRATE
     Indication: CHRONIC OBSTRUCTIVE PULMONARY DISEASE
     Route: 055
     Dates: start: 20190314
  9. PREDNISOLONE. [Suspect]
     Active Substance: PREDNISOLONE
     Indication: GIANT CELL ARTERITIS
     Dosage: 26?WK CS TAPER SCHEDULE
     Route: 048
     Dates: start: 20190618, end: 20191014
  10. CALCIMAGON D3 FORTE [Concomitant]
     Indication: OSTEOPOROSIS PROPHYLAXIS
     Route: 048
     Dates: start: 20190520
  11. CHININSULFAT HAENSELER [Concomitant]
     Active Substance: QUININE SULFATE
     Indication: MUSCLE SPASMS
     Route: 048
     Dates: start: 201904
  12. PANTOZOL [Concomitant]
     Active Substance: PANTOPRAZOLE SODIUM
     Indication: PROPHYLAXIS
     Route: 048
     Dates: start: 20190501

REACTIONS (2)
  - Tongue neoplasm malignant stage unspecified [Recovered/Resolved]
  - Pneumocystis jirovecii pneumonia [Recovered/Resolved]

NARRATIVE: CASE EVENT DATE: 20200109
